FAERS Safety Report 17710678 (Version 1)
Quarter: 2020Q2

REPORT INFORMATION
  Report Type: Spontaneous
  Country: CH (occurrence: CH)
  Receive Date: 20200427
  Receipt Date: 20200427
  Transmission Date: 20200714
  Serious: Yes (Hospitalization, Other)
  Sender: FDA-Public Use
  Company Number: CH-TEVA-2020-CH-1226187

PATIENT
  Age: 54 Year
  Sex: Male

DRUGS (17)
  1. DIFLUCAN [Suspect]
     Active Substance: FLUCONAZOLE
     Dates: start: 20200313
  2. FRAGMIN [Suspect]
     Active Substance: DALTEPARIN SODIUM
     Dates: start: 20200311
  3. GRAFALON [Suspect]
     Active Substance: LAPINE T-LYMPHOCYTE IMMUNE GLOBULIN
     Dosage: GRAFALON 125 MG INF. AM 20.03.2020, 24.03., 27.03. UND 28.03.2020 ; AS NECESSARY
     Dates: start: 20200320, end: 20200328
  4. HYDROMORPHONI HYDROCHLORIDUM [Suspect]
     Active Substance: HYDROMORPHONE HYDROCHLORIDE
     Dosage: MORPHIN 5 MG 2X/DIE SEIT 11.03.2020-20.03.2020, DANN HYDROMORPHON 1 MG 2X/DIE SEIT 21.03.2020, AB...
     Dates: start: 20200321, end: 20200325
  5. KCL HAUSMANN [Concomitant]
     Dates: start: 20200316, end: 20200401
  6. SOLU-MEDROL [Suspect]
     Active Substance: METHYLPREDNISOLONE SODIUM SUCCINATE
     Route: 041
     Dates: start: 20200313, end: 20200327
  7. SOLU-MEDROL [Suspect]
     Active Substance: METHYLPREDNISOLONE SODIUM SUCCINATE
     Route: 041
     Dates: start: 20200328, end: 20200330
  8. HUMALOG [Concomitant]
     Active Substance: INSULIN LISPRO
     Dosage: AS NECESSARY
     Dates: start: 20200313
  9. TECENTRIQ [Suspect]
     Active Substance: ATEZOLIZUMAB
     Dosage: CYCLICAL
     Dates: start: 20200219, end: 20200219
  10. NOPIL [Suspect]
     Active Substance: SULFAMETHOXAZOLE\TRIMETHOPRIM
     Dates: start: 20200313
  11. VALTREX [Suspect]
     Active Substance: VALACYCLOVIR HYDROCHLORIDE
     Dates: start: 20200319
  12. PHOSPHATE SANDOZ [Concomitant]
     Active Substance: SODIUM PHOSPHATE, MONOBASIC, ANHYDROUS
     Dates: start: 20200316
  13. SOLU-MEDROL [Suspect]
     Active Substance: METHYLPREDNISOLONE SODIUM SUCCINATE
     Route: 041
     Dates: start: 20200329
  14. PANTOZOL [Suspect]
     Active Substance: PANTOPRAZOLE SODIUM
     Dates: start: 20200311
  15. CELLCEPT [Suspect]
     Active Substance: MYCOPHENOLATE MOFETIL\MYCOPHENOLATE MOFETIL HYDROCHLORIDE
     Dates: start: 20200313, end: 20200318
  16. CELLCEPT [Suspect]
     Active Substance: MYCOPHENOLATE MOFETIL\MYCOPHENOLATE MOFETIL HYDROCHLORIDE
     Dates: start: 20200319
  17. STILNOX [Suspect]
     Active Substance: ZOLPIDEM TARTRATE
     Dosage: STILNOX 10 MG BEI BEDARF AM 10.03., 12.03., 13.03., 15.03., 17.- 19.03.2020, 25.03.2020 BIS AUF W...
     Dates: start: 20200310

REACTIONS (6)
  - Autoimmune hepatitis [Not Recovered/Not Resolved]
  - Off label use [Not Recovered/Not Resolved]
  - Pancreatitis [Recovered/Resolved]
  - Hepatitis cholestatic [Not Recovered/Not Resolved]
  - Contraindicated product administered [Not Recovered/Not Resolved]
  - Cholangitis [Not Recovered/Not Resolved]

NARRATIVE: CASE EVENT DATE: 20200310
